FAERS Safety Report 18033750 (Version 1)
Quarter: 2020Q3

REPORT INFORMATION
  Report Type: Other
  Country: PT (occurrence: PT)
  Receive Date: 20200717
  Receipt Date: 20200717
  Transmission Date: 20201103
  Serious: Yes (Other)
  Sender: FDA-Public Use
  Company Number: PT-DENTSPLY-2020SCDP000221

PATIENT
  Age: 37 Year
  Sex: Male

DRUGS (2)
  1. ARTINIBSA [Suspect]
     Active Substance: ARTICAINE HYDROCHLORIDE\EPINEPHRINE BITARTRATE
     Indication: LOCAL ANAESTHESIA
     Dosage: SOLUTION FOR INJECTION
     Dates: start: 201906, end: 201906
  2. XYLOCAINE [Suspect]
     Active Substance: LIDOCAINE HYDROCHLORIDE
     Indication: LOCAL ANAESTHESIA
     Dosage: XILONIBSA SPRAY 10%, SOLUTION FOR NASAL OR MOUTH SPRAY
     Dates: start: 201906, end: 201906

REACTIONS (3)
  - Dyspnoea [Recovered/Resolved]
  - Palatal oedema [Recovered/Resolved]
  - Laryngeal oedema [Recovered/Resolved]

NARRATIVE: CASE EVENT DATE: 201906
